FAERS Safety Report 18977204 (Version 1)
Quarter: 2021Q1

REPORT INFORMATION
  Report Type: Spontaneous
  Country: GB (occurrence: GB)
  Receive Date: 20210306
  Receipt Date: 20210306
  Transmission Date: 20210420
  Serious: Yes (Hospitalization)
  Sender: FDA-Public Use
  Company Number: GB-ACCORD-218865

PATIENT
  Age: 72 Year
  Sex: Female

DRUGS (11)
  1. TEVA UK LISINOPRIL [Concomitant]
  2. DOXAZOSIN [Concomitant]
     Active Substance: DOXAZOSIN MESYLATE
  3. FUROSEMIDE. [Concomitant]
     Active Substance: FUROSEMIDE
  4. FLUAD NOS [Concomitant]
     Active Substance: INFLUENZA VIRUS VACCINE
     Route: 030
  5. PHENOXYMETHYLPENICILLIN [Concomitant]
     Active Substance: PENICILLIN V
  6. SERTRALINE [Suspect]
     Active Substance: SERTRALINE HYDROCHLORIDE
     Indication: PRODUCT USED FOR UNKNOWN INDICATION
  7. DALTEPARIN [Concomitant]
     Active Substance: DALTEPARIN
     Dosage: 15,000UNITS/0.6ML
  8. SIMVASTATIN. [Concomitant]
     Active Substance: SIMVASTATIN
     Dosage: AT NIGHT
  9. NITROFURANTOIN. [Concomitant]
     Active Substance: NITROFURANTOIN
  10. FOLIC ACID. [Concomitant]
     Active Substance: FOLIC ACID
  11. QUININE [Concomitant]
     Active Substance: QUININE
     Dosage: AT NIGHT

REACTIONS (3)
  - Seizure [Unknown]
  - Coma scale abnormal [Unknown]
  - Unresponsive to stimuli [Unknown]
